FAERS Safety Report 7545148-8 (Version None)
Quarter: 2011Q2

REPORT INFORMATION
  Report Type: 
  Country: None (occurrence: None)
  Receive Date: 20110531
  Receipt Date: 20110516
  Transmission Date: 20111010
  Serious: Yes (Other)
  Sender: FDA-Public Use
  Company Number: 2011028682

PATIENT
  Age: 65 Year
  Sex: Female
  Weight: 74.8435 kg

DRUGS (16)
  1. SPIRONOLACTONE [Concomitant]
  2. MUCINEX [Concomitant]
  3. HIZENTRA [Suspect]
     Dosage: SUBCUTANEOUS
     Route: 058
     Dates: start: 20110510
  4. SERTRALINE HYDROCHLORIDE [Concomitant]
  5. HIZENTRA [Suspect]
     Indication: IMMUNODEFICIENCY COMMON VARIABLE
     Dosage: 11G, 1X/WEEK, INFUSED 55M; VIA 4 SITES OVER 1HR 13MIN, SUBCUTANEOUS
     Route: 058
     Dates: start: 20110329
  6. HIZENTRA [Suspect]
     Dosage: SUBCUTANEOUS
     Route: 058
     Dates: start: 20110510
  7. ROPINIROLE [Concomitant]
  8. MULTIVITAMIN (DAILY MULTIVITAMIN) [Concomitant]
  9. PRILOSEC [Concomitant]
  10. SINGULAIR [Concomitant]
  11. XYZAL [Concomitant]
  12. CALCIUM CARBONATE [Concomitant]
  13. HIZENTRA [Suspect]
     Dosage: SUBCUTANEOUS
     Route: 058
     Dates: start: 20110510
  14. MEDROL [Concomitant]
  15. LEVOTHYROXINE SODIUM [Concomitant]
  16. OMNARIS (CICLESONIDE) [Concomitant]

REACTIONS (2)
  - URINARY TRACT INFECTION [None]
  - UNEVALUABLE EVENT [None]
